FAERS Safety Report 8261267 (Version 12)
Quarter: 2013Q2

REPORT INFORMATION
  Report Type: Spontaneous
  Country: CA (occurrence: CA)
  Receive Date: 20111123
  Receipt Date: 20130501
  Transmission Date: 20140414
  Serious: Yes (Hospitalization, Other)
  Sender: FDA-Public Use
  Company Number: CA-ROCHE-1007788

PATIENT
  Age: 48 Year
  Sex: Female

DRUGS (5)
  1. XOLAIR [Suspect]
     Indication: ASTHMA
     Route: 058
     Dates: start: 20110425
  2. XOLAIR [Suspect]
     Route: 058
     Dates: start: 20120112
  3. ADVAIR [Concomitant]
  4. SINGULAIR [Concomitant]
  5. SPIRIVA [Concomitant]

REACTIONS (18)
  - Dyspnoea [Recovered/Resolved]
  - Weight decreased [Unknown]
  - Tooth abscess [Unknown]
  - Pain [Unknown]
  - Asthma [Recovered/Resolved]
  - Loss of consciousness [Unknown]
  - Abdominal distension [Unknown]
  - Haemoptysis [Recovered/Resolved]
  - Nasopharyngitis [Unknown]
  - Malaise [Unknown]
  - Blood pressure increased [Unknown]
  - Lung infection [Unknown]
  - Panic attack [Recovered/Resolved]
  - Weight increased [Unknown]
  - Wheezing [Unknown]
  - Swelling face [Unknown]
  - Sinusitis [Unknown]
  - Rhinorrhoea [Unknown]
